FAERS Safety Report 6924588-1 (Version None)
Quarter: 2010Q3

REPORT INFORMATION
  Report Type: 
  Country: None (occurrence: None)
  Receive Date: 20100816
  Receipt Date: 20100804
  Transmission Date: 20110219
  Serious: Yes (Other)
  Sender: FDA-Public Use
  Company Number: US-JNJFOC-20100707800

PATIENT
  Sex: Female
  Weight: 145.15 kg

DRUGS (6)
  1. REMICADE [Suspect]
     Indication: ERYTHRODERMIC PSORIASIS
     Route: 042
  2. REMICADE [Suspect]
     Indication: RHEUMATOID ARTHRITIS
     Route: 042
  3. ARANESP [Concomitant]
     Indication: ANAEMIA
  4. LOPRESSOR [Concomitant]
  5. DIOVAN [Concomitant]
  6. ARAVA [Concomitant]

REACTIONS (10)
  - CHEST PAIN [None]
  - DIARRHOEA [None]
  - DRUG HYPERSENSITIVITY [None]
  - DYSPNOEA [None]
  - HEADACHE [None]
  - HYPOTENSION [None]
  - INFUSION RELATED REACTION [None]
  - PERICARDITIS [None]
  - RENAL IMPAIRMENT [None]
  - SWOLLEN TONGUE [None]
